FAERS Safety Report 21227300 (Version 1)
Quarter: 2022Q3

REPORT INFORMATION
  Report Type: Spontaneous
  Country: US (occurrence: None)
  Receive Date: 20220817
  Receipt Date: 20220817
  Transmission Date: 20221027
  Serious: Yes (Hospitalization)
  Sender: FDA-Public Use
  Company Number: None

PATIENT
  Age: 55 Year
  Sex: Female

DRUGS (2)
  1. BUPROPION HYDROCHLORIDE SR [Suspect]
     Active Substance: BUPROPION HYDROCHLORIDE
     Indication: Product used for unknown indication
     Dates: start: 20180621
  2. LaMICtal      TAB 200MG [Concomitant]
     Dates: start: 20180615

REACTIONS (5)
  - Tremor [None]
  - Gait disturbance [None]
  - Vision blurred [None]
  - Diplopia [None]
  - Dysstasia [None]

NARRATIVE: CASE EVENT DATE: 20220803
